FAERS Safety Report 11252023 (Version 1)
Quarter: 2015Q3

REPORT INFORMATION
  Report Type: Spontaneous
  Country: US (occurrence: US)
  Receive Date: 20150708
  Receipt Date: 20150708
  Transmission Date: 20151125
  Serious: No
  Sender: FDA-Public Use
  Company Number: US-ELI_LILLY_AND_COMPANY-US201210005993

PATIENT
  Age: 6 Year
  Sex: Female

DRUGS (4)
  1. CLONIDINE HCL [Concomitant]
     Active Substance: CLONIDINE HYDROCHLORIDE
     Dosage: 0.1 MG, BID
  2. GUANFACINE. [Concomitant]
     Active Substance: GUANFACINE
  3. PROZAC [Suspect]
     Active Substance: FLUOXETINE HYDROCHLORIDE
     Dosage: 8 MG, UNK
     Dates: start: 20120328, end: 201206
  4. CLONIDINE HCL [Concomitant]
     Active Substance: CLONIDINE HYDROCHLORIDE
     Dosage: 0.1 MG, EACH EVENING
     Dates: start: 20120623

REACTIONS (3)
  - Off label use [Recovered/Resolved]
  - Unevaluable event [Unknown]
  - Dysphemia [Unknown]

NARRATIVE: CASE EVENT DATE: 20120717
